FAERS Safety Report 9403358 (Version 1)
Quarter: 2013Q3

REPORT INFORMATION
  Report Type: Spontaneous
  Country: TR (occurrence: TR)
  Receive Date: 20130716
  Receipt Date: 20130716
  Transmission Date: 20140515
  Serious: Yes (Death, Hospitalization)
  Sender: FDA-Public Use
  Company Number: TR-MYLANLABS-2013S1015030

PATIENT
  Age: 17 Year
  Sex: Female

DRUGS (3)
  1. METFORMIN [Suspect]
     Indication: COMPLETED SUICIDE
     Dosage: DF = 1000MG PILLS; TOTAL DOSE = 75G
     Route: 065
  2. RUPATADINE [Interacting]
     Indication: COMPLETED SUICIDE
     Dosage: DF = 10MG PILLS
     Route: 065
  3. AMITRIPTYLINE [Concomitant]
     Indication: MAJOR DEPRESSION
     Dosage: 10MG DAILY
     Route: 065

REACTIONS (7)
  - Overdose [Fatal]
  - Lactic acidosis [Not Recovered/Not Resolved]
  - Ventricular tachycardia [Not Recovered/Not Resolved]
  - Cardiopulmonary failure [Fatal]
  - Completed suicide [Fatal]
  - Drug interaction [Not Recovered/Not Resolved]
  - Poisoning [Fatal]
